FAERS Safety Report 9030806 (Version 2)
Quarter: 2013Q2

REPORT INFORMATION
  Report Type: Spontaneous
  Country: TR (occurrence: TR)
  Receive Date: 20130123
  Receipt Date: 20130408
  Transmission Date: 20140414
  Serious: Yes (Hospitalization, Other)
  Sender: FDA-Public Use
  Company Number: TR-AMGEN-TURSP2013004827

PATIENT
  Age: 32 Year
  Sex: Male
  Weight: 58 kg

DRUGS (3)
  1. ENBREL [Suspect]
     Indication: ANKYLOSING SPONDYLITIS
     Dosage: 50 MG, WEEKLY
     Route: 058
     Dates: start: 20121212, end: 20130102
  2. ISOVIT                             /00303101/ [Concomitant]
     Dosage: 300 MG, QD
     Route: 048
     Dates: start: 201207
  3. LANSOR [Concomitant]
     Dosage: 30 MG, QD
     Route: 048

REACTIONS (8)
  - Generalised erythema [Recovered/Resolved]
  - Pruritus generalised [Recovered/Resolved]
  - Rash generalised [Recovered/Resolved]
  - Eyelid oedema [Recovered/Resolved]
  - Lip swelling [Recovered/Resolved]
  - Contusion [Recovered/Resolved]
  - Cough [Recovered/Resolved]
  - Pyrexia [Recovered/Resolved]
